FAERS Safety Report 7876682-9 (Version None)
Quarter: 2011Q4

REPORT INFORMATION
  Report Type: 
  Country: None (occurrence: None)
  Receive Date: 20111031
  Receipt Date: 20111026
  Transmission Date: 20120403
  Serious: Yes (Death, Hospitalization)
  Sender: FDA-Public Use
  Company Number: US-AMGEN-USASP2011053037

PATIENT
  Sex: Male

DRUGS (2)
  1. CORTICOSTEROIDS [Concomitant]
     Indication: THROMBOCYTOPENIA
  2. NPLATE [Suspect]
     Indication: THROMBOCYTOPENIA
     Dates: start: 20110324

REACTIONS (3)
  - HOSPITALISATION [None]
  - B-CELL LYMPHOMA [None]
  - RESPIRATORY FAILURE [None]
